FAERS Safety Report 11424653 (Version 1)
Quarter: 2015Q3

REPORT INFORMATION
  Report Type: Spontaneous
  Country: US (occurrence: US)
  Receive Date: 20150827
  Receipt Date: 20150827
  Transmission Date: 20151125
  Serious: Yes (Other)
  Sender: FDA-Public Use
  Company Number: US-INCYTE CORPORATION-2015IN004134

PATIENT
  Sex: Male

DRUGS (8)
  1. HYDROCHLOROTHIAZIDE. [Concomitant]
     Active Substance: HYDROCHLOROTHIAZIDE
  2. CALCIUM [Concomitant]
     Active Substance: CALCIUM
  3. JAKAFI [Suspect]
     Active Substance: RUXOLITINIB
     Indication: MYELOFIBROSIS
     Dosage: 10 MG, BID
     Route: 048
     Dates: start: 20150722
  4. MUPIROCIN. [Concomitant]
     Active Substance: MUPIROCIN
  5. COENZYME Q10 [Concomitant]
     Active Substance: UBIDECARENONE
  6. CENTRUM                            /07499601/ [Concomitant]
  7. METOPROLOL [Concomitant]
     Active Substance: METOPROLOL
  8. LOSARTAN. [Concomitant]
     Active Substance: LOSARTAN

REACTIONS (2)
  - Tenderness [Unknown]
  - Blindness unilateral [Unknown]
